FAERS Safety Report 16573206 (Version 3)
Quarter: 2019Q4

REPORT INFORMATION
  Report Type: Spontaneous
  Country: JP (occurrence: JP)
  Receive Date: 20190715
  Receipt Date: 20191004
  Transmission Date: 20200122
  Serious: Yes (Hospitalization, Other)
  Sender: FDA-Public Use
  Company Number: JP-BRISTOL-MYERS SQUIBB COMPANY-BMS-2019-063888

PATIENT
  Age: 71 Year
  Sex: Male

DRUGS (2)
  1. OPDIVO [Suspect]
     Active Substance: NIVOLUMAB
     Indication: RENAL CANCER
     Dosage: UNK
     Route: 065
  2. YERVOY [Suspect]
     Active Substance: IPILIMUMAB
     Indication: RENAL CANCER
     Dosage: UNK
     Route: 065

REACTIONS (15)
  - Dysarthria [Unknown]
  - Myositis [Unknown]
  - Hyperthyroidism [Not Recovered/Not Resolved]
  - Decreased appetite [Recovered/Resolved]
  - Myasthenia gravis [Unknown]
  - Nausea [Recovered/Resolved]
  - Cortisol increased [Unknown]
  - Encephalitis [Unknown]
  - Thyroiditis [Unknown]
  - Blood corticotrophin increased [Unknown]
  - Blood creatine phosphokinase increased [Unknown]
  - Blood creatine phosphokinase MB increased [Unknown]
  - Fatigue [Unknown]
  - Myocarditis [Unknown]
  - Electrocardiogram abnormal [Unknown]

NARRATIVE: CASE EVENT DATE: 20190627
